FAERS Safety Report 9965239 (Version 1)
Quarter: 2014Q1

REPORT INFORMATION
  Report Type: Report from Study
  Country: US (occurrence: US)
  Receive Date: 20140305
  Receipt Date: 20140305
  Transmission Date: 20141002
  Serious: No
  Sender: FDA-Public Use
  Company Number: US-ABBVIE-13P-163-1127873-00

PATIENT
  Age: 41 Year
  Sex: Male

DRUGS (3)
  1. HUMIRA [Suspect]
     Indication: CROHN^S DISEASE
     Route: 058
     Dates: start: 20130517
  2. EFFEXOR [Concomitant]
     Indication: DEPRESSION
  3. TOPROL [Concomitant]
     Indication: HYPERTENSION

REACTIONS (5)
  - Inappropriate schedule of drug administration [Not Recovered/Not Resolved]
  - Dry skin [Not Recovered/Not Resolved]
  - Pruritus [Not Recovered/Not Resolved]
  - Skin fissures [Not Recovered/Not Resolved]
  - Pain of skin [Not Recovered/Not Resolved]
